FAERS Safety Report 13521149 (Version 3)
Quarter: 2017Q2

REPORT INFORMATION
  Report Type: Report from Study
  Country: MX (occurrence: MX)
  Receive Date: 20170508
  Receipt Date: 20170621
  Transmission Date: 20170830
  Serious: Yes (Death, Hospitalization, Other)
  Sender: FDA-Public Use
  Company Number: PHHY2017MX067287

PATIENT
  Age: 70 Year
  Sex: Female
  Weight: 47 kg

DRUGS (2)
  1. EXELON PATCH [Suspect]
     Active Substance: RIVASTIGMINE
     Indication: NERVOUS SYSTEM DISORDER
     Dosage: 13.3 MG, PATCH 15 (CM2) QD
     Route: 062
     Dates: start: 20160701
  2. EUTEBROL [Concomitant]
     Indication: NERVOUS SYSTEM DISORDER
     Dosage: 40 MG, QD
     Route: 048
     Dates: start: 201602

REACTIONS (4)
  - Peritonitis [Fatal]
  - Complication associated with device [Fatal]
  - Thrombosis [Not Recovered/Not Resolved]
  - Feeding disorder [Not Recovered/Not Resolved]

NARRATIVE: CASE EVENT DATE: 2016
